FAERS Safety Report 9624306 (Version 1)
Quarter: 2013Q4

REPORT INFORMATION
  Report Type: Spontaneous
  Country: FR (occurrence: FR)
  Receive Date: 20131015
  Receipt Date: 20131015
  Transmission Date: 20140711
  Serious: Yes (Hospitalization)
  Sender: FDA-Public Use
  Company Number: FR-UCBSA-099794

PATIENT
  Age: 17 Year
  Sex: Female
  Weight: 45 kg

DRUGS (5)
  1. CIMZIA [Suspect]
     Indication: JUVENILE IDIOPATHIC ARTHRITIS
     Dosage: 200MG-SINGLE DOSE
     Route: 058
     Dates: start: 20130422, end: 20130423
  2. METHOTREXATE [Concomitant]
     Indication: JUVENILE IDIOPATHIC ARTHRITIS
     Dosage: 15MG/WEEK
  3. CORTANCYL [Concomitant]
     Indication: JUVENILE IDIOPATHIC ARTHRITIS
     Dosage: 15MG/DAY
  4. DOLIPRANE [Concomitant]
     Indication: JUVENILE IDIOPATHIC ARTHRITIS
     Dosage: 2-3G/DAY
  5. KINERET [Concomitant]
     Indication: JUVENILE IDIOPATHIC ARTHRITIS
     Dosage: UNSPECIFIED DOSE
     Dates: start: 20130205, end: 20130415

REACTIONS (1)
  - Urticaria [Recovered/Resolved]
